FAERS Safety Report 5826805-8 (Version None)
Quarter: 2008Q3

REPORT INFORMATION
  Report Type: 
  Country: None (occurrence: None)
  Receive Date: 20080728
  Receipt Date: 20080728
  Transmission Date: 20090109
  Serious: Yes (Other)
  Sender: FDA-Public Use
  Company Number: None

PATIENT
  Age: 67 Year
  Sex: Female
  Weight: 88.905 kg

DRUGS (1)
  1. METOPROLOL 50 MG [Suspect]
     Indication: HYPERTENSION
     Dates: start: 20070106, end: 20080408

REACTIONS (1)
  - BLOOD CHOLESTEROL INCREASED [None]
